FAERS Safety Report 4442887-2 (Version None)
Quarter: 2004Q3

REPORT INFORMATION
  Report Type: 
  Country: None (occurrence: None)
  Receive Date: 20040907
  Receipt Date: 20040907
  Transmission Date: 20050211
  Serious: No
  Sender: FDA-Public Use
  Company Number: None

PATIENT
  Sex: Female
  Weight: 68.0396 kg

DRUGS (2)
  1. OMNIPAQUE 300 [Suspect]
     Indication: APPENDICITIS
     Dosage: 100 ML ONCE IVP
     Route: 042
     Dates: start: 20040904
  2. ZOFRAN [Concomitant]

REACTIONS (2)
  - PRURITUS [None]
  - URTICARIA [None]
